FAERS Safety Report 7801881-1 (Version None)
Quarter: 2011Q4

REPORT INFORMATION
  Report Type: 
  Country: None (occurrence: None)
  Receive Date: 20111007
  Receipt Date: 20111006
  Transmission Date: 20120403
  Serious: Yes (Hospitalization, Other)
  Sender: FDA-Public Use
  Company Number: FR-PFIZER INC-2002000001

PATIENT
  Age: 81 Year
  Sex: Male

DRUGS (7)
  1. CELIPROLOL [Concomitant]
  2. DILTIAZEM HCL [Suspect]
     Route: 048
  3. DIPYRIDAMOLE [Suspect]
     Route: 048
  4. TAMSULOSIN HCL [Suspect]
     Route: 048
  5. LASIX [Suspect]
     Dosage: 40 MG DAILY
     Route: 048
  6. PRAZOSIN HCL [Suspect]
     Route: 048
  7. DEPAKENE [Suspect]
     Indication: CONVULSION
     Dosage: 500 MG, 2X/DAY
     Route: 048
     Dates: start: 19990819, end: 20011016

REACTIONS (7)
  - DRUG LEVEL DECREASED [None]
  - CONVULSION [None]
  - ANAEMIA MACROCYTIC [None]
  - THROMBOCYTOPENIA [None]
  - HYPONATRAEMIA [None]
  - LEUKOPENIA [None]
  - NEUTROPENIA [None]
